FAERS Safety Report 8714740 (Version 2)
Quarter: 2012Q4

REPORT INFORMATION
  Report Type: 
  Country: US (occurrence: US)
  Receive Date: 20120809
  Receipt Date: 20121005
  Transmission Date: 20130627
  Serious: Yes (Hospitalization)
  Sender: FDA-Public Use
  Company Number: US-BAYER-2012-080147

PATIENT
  Age: 15 Year
  Sex: Female
  Weight: 86.17 kg

DRUGS (7)
  1. YASMIN [Suspect]
     Indication: ACNE
     Dosage: UNK
     Dates: start: 20080728, end: 20100522
  2. OCELLA [Suspect]
     Indication: ACNE
     Dosage: UNK
     Dates: start: 20100330
  3. XANAX [Concomitant]
     Dosage: 0.25 mg, PRN
  4. NAPROXEN [Concomitant]
     Dosage: UNK UNK, PRN
  5. IBUPROFEN [Concomitant]
     Dosage: UNK UNK, PRN
  6. SPIRONOLACTONE [Concomitant]
     Indication: ACNE
     Dosage: UNK
     Dates: start: 2008
  7. AMITRIPTYLINE [Concomitant]

REACTIONS (4)
  - Deep vein thrombosis [None]
  - Injury [None]
  - Pain [None]
  - Pain [None]
